FAERS Safety Report 5652174-2 (Version None)
Quarter: 2008Q1

REPORT INFORMATION
  Report Type: 
  Country: None (occurrence: None)
  Receive Date: 20080131
  Receipt Date: 20071120
  Transmission Date: 20080703
  Serious: No
  Sender: FDA-Public Use
  Company Number: US200711004885

PATIENT
  Age: 72 Year
  Sex: Male

DRUGS (4)
  1. BYETTA [Suspect]
     Indication: TYPE 2 DIABETES MELLITUS
     Dosage: 5 UG, 2/D, SUBCUTANEOUS
     Route: 058
     Dates: start: 20071026, end: 20071115
  2. DRUG USED IN DIABETES [Concomitant]
  3. LIPITOR [Concomitant]
  4. LOPID [Concomitant]

REACTIONS (2)
  - BACK PAIN [None]
  - MUSCLE STRAIN [None]
